FAERS Safety Report 4263897-4 (Version None)
Quarter: 2004Q1

REPORT INFORMATION
  Report Type: 
  Country: None (occurrence: None)
  Receive Date: 20040102
  Receipt Date: 20030923
  Transmission Date: 20041129
  Serious: Yes (Life-Threatening)
  Sender: FDA-Public Use
  Company Number: A04200300589

PATIENT
  Age: 76 Year
  Sex: Male

DRUGS (5)
  1. ELOXATIN [Suspect]
     Indication: COLON CANCER
     Dosage: 65 MG OTHER INTRAVENOUS DRIP
     Route: 041
     Dates: start: 20030904, end: 20030904
  2. ELOXATIN [Suspect]
     Indication: METASTASES TO LIVER
     Dosage: 65 MG OTHER INTRAVENOUS DRIP
     Route: 041
     Dates: start: 20030904, end: 20030904
  3. ELOXATIN [Suspect]
     Indication: METASTASES TO LUNG
     Dosage: 65 MG OTHER INTRAVENOUS DRIP
     Route: 041
     Dates: start: 20030904, end: 20030904
  4. FLUOROURACIL [Concomitant]
  5. CALCIUMFOLINAT (CALCIUM FOLINATE) [Concomitant]

REACTIONS (1)
  - CONVULSION [None]
